FAERS Safety Report 9379167 (Version 1)
Quarter: 2013Q3

REPORT INFORMATION
  Report Type: Spontaneous
  Country: US (occurrence: US)
  Receive Date: 20130702
  Receipt Date: 20130702
  Transmission Date: 20140515
  Serious: Yes (Hospitalization, Other)
  Sender: FDA-Public Use
  Company Number: US-ASTELLAS-2013US006731

PATIENT
  Age: 73 Year
  Sex: Female

DRUGS (3)
  1. TARCEVA [Suspect]
     Indication: NON-SMALL CELL LUNG CANCER
     Dosage: UNK
     Route: 048
  2. CORTICOSTEROIDS [Suspect]
     Indication: RASH
     Dosage: UNK
     Route: 061
  3. BENADRYL                           /00000402/ [Concomitant]
     Indication: RASH
     Dosage: UNK
     Route: 042

REACTIONS (5)
  - Deafness [Unknown]
  - Syncope [Not Recovered/Not Resolved]
  - Foot fracture [Unknown]
  - Skeletal injury [Unknown]
  - Rash [Not Recovered/Not Resolved]
